FAERS Safety Report 8108954-7 (Version None)
Quarter: 2012Q1

REPORT INFORMATION
  Report Type: 
  Country: None (occurrence: None)
  Receive Date: 20120202
  Receipt Date: 20120103
  Transmission Date: 20120608
  Serious: No
  Sender: FDA-Public Use
  Company Number: US-AMGEN-USASP2012000105

PATIENT
  Age: 50 Year
  Sex: Male
  Weight: 136 kg

DRUGS (13)
  1. KLOR-CON [Concomitant]
     Dosage: 10 MEQ, UNK
  2. SIMVASTATIN [Concomitant]
     Dosage: 10 MG, UNK
  3. TOPROL-XL [Concomitant]
     Dosage: 100 MG, UNK
  4. TYLENOL (CAPLET) [Concomitant]
     Dosage: 650 MG, Q8H
  5. FOLIC ACID [Concomitant]
     Dosage: UNK
  6. PREDNISONE TAB [Concomitant]
     Dosage: 10 MG, UNK
  7. METHOTREXATE [Concomitant]
     Dosage: 2.5 MG, UNK
  8. VITAMIN D [Concomitant]
     Dosage: 50000 IU, UNK
  9. ISONIAZID [Concomitant]
     Dosage: 100 MG, UNK
  10. ENBREL [Suspect]
     Indication: PRODUCT USED FOR UNKNOWN INDICATION
     Dosage: 50 MG, QWK
     Route: 058
  11. NEXIUM [Concomitant]
     Dosage: 20 MG, UNK
  12. LOSARTAN POTASSIUM [Concomitant]
     Dosage: 100 MG, UNK
  13. ASPIRIN [Concomitant]
     Dosage: 81 MG, UNK

REACTIONS (2)
  - OROPHARYNGEAL PAIN [None]
  - NASOPHARYNGITIS [None]
